FAERS Safety Report 5704891-3 (Version None)
Quarter: 2008Q2

REPORT INFORMATION
  Report Type: 
  Country: None (occurrence: None)
  Receive Date: 20080414
  Receipt Date: 20080402
  Transmission Date: 20081010
  Serious: Yes (Other)
  Sender: FDA-Public Use
  Company Number: US-PFIZER INC-2008029771

PATIENT
  Sex: Female
  Weight: 89.8 kg

DRUGS (3)
  1. CHANTIX [Suspect]
     Indication: SMOKING CESSATION THERAPY
     Route: 048
  2. VERAPAMIL [Concomitant]
     Indication: HYPERTENSION
     Route: 048
  3. BUTALBITAL COMPOUND [Concomitant]
     Indication: MIGRAINE
     Route: 048

REACTIONS (3)
  - ABNORMAL SENSATION IN EYE [None]
  - HEADACHE [None]
  - HYPERTENSION [None]
